FAERS Safety Report 4949617-6 (Version None)
Quarter: 2006Q1

REPORT INFORMATION
  Report Type: 
  Country: None (occurrence: None)
  Receive Date: 20060315
  Receipt Date: 20060224
  Transmission Date: 20060701
  Serious: No
  Sender: FDA-Public Use
  Company Number: US_0508120905

PATIENT
  Age: 26 Year
  Sex: Male
  Weight: 108.8 kg

DRUGS (5)
  1. ZYPREXA [Suspect]
     Indication: BIPOLAR DISORDER
     Dosage: SEE IMAGE
     Dates: start: 20030101, end: 20030519
  2. ZYPREXA [Suspect]
     Indication: BIPOLAR DISORDER
     Dosage: SEE IMAGE
     Dates: start: 20021213
  3. REMERON [Concomitant]
  4. PAXIL [Concomitant]
  5. ATIVAN [Concomitant]

REACTIONS (5)
  - ABDOMINAL PAIN [None]
  - DIABETES MELLITUS NON-INSULIN-DEPENDENT [None]
  - FLANK PAIN [None]
  - HAEMATOCHEZIA [None]
  - VISUAL DISTURBANCE [None]
